FAERS Safety Report 10963580 (Version 4)
Quarter: 2015Q3

REPORT INFORMATION
  Report Type: Spontaneous
  Country: BR (occurrence: BR)
  Receive Date: 20150327
  Receipt Date: 20150921
  Transmission Date: 20151125
  Serious: Yes (Death, Hospitalization, Other)
  Sender: FDA-Public Use
  Company Number: BR-ASTRAZENECA-2015SE27357

PATIENT
  Age: 73 Year
  Sex: Female

DRUGS (5)
  1. ALENIA [Suspect]
     Active Substance: BUDESONIDE\FORMOTEROL FUMARATE
     Indication: DYSPNOEA
     Dosage: FORASEQ, UNKNOWN DOSE AND FREQUENCY
     Route: 055
  2. SPIRIVA [Concomitant]
     Active Substance: TIOTROPIUM BROMIDE MONOHYDRATE
     Indication: DYSPNOEA
  3. ALENIA [Suspect]
     Active Substance: BUDESONIDE\FORMOTEROL FUMARATE
     Indication: DYSPNOEA
     Dosage: ALENIA, UNKNOWN DOSE AND FREQUENCY
     Route: 055
     Dates: start: 201501
  4. ALENIA [Suspect]
     Active Substance: BUDESONIDE\FORMOTEROL FUMARATE
     Indication: DYSPNOEA
     Dosage: UNKNOWN, BID
     Route: 055
     Dates: start: 2011, end: 201501
  5. ALENIA [Suspect]
     Active Substance: BUDESONIDE\FORMOTEROL FUMARATE
     Indication: DYSPNOEA
     Dosage: SYMBICORT TURBUHALER, 320/9MCG, BID
     Route: 055
     Dates: start: 201501, end: 2015

REACTIONS (5)
  - Breast cancer [Unknown]
  - Pneumonia [Fatal]
  - Sleep disorder due to a general medical condition [Recovered/Resolved]
  - Intentional product misuse [Not Recovered/Not Resolved]
  - Dyspnoea [Recovering/Resolving]

NARRATIVE: CASE EVENT DATE: 2011
